FAERS Safety Report 4413167-6 (Version None)
Quarter: 2004Q3

REPORT INFORMATION
  Report Type: 
  Country: None (occurrence: None)
  Receive Date: 20040802
  Receipt Date: 20040603
  Transmission Date: 20050211
  Serious: Yes (Death)
  Sender: FDA-Public Use
  Company Number: FR-GLAXOSMITHKLINE-B0334598B

PATIENT

DRUGS (1)
  1. AMOXICILLIN [Suspect]
     Dates: start: 20040401, end: 20040401

REACTIONS (6)
  - ACIDOSIS [None]
  - DEATH [None]
  - DEATH NEONATAL [None]
  - DRUG EXPOSURE DURING PREGNANCY [None]
  - HYPOTONIA [None]
  - HYPOTONIA NEONATAL [None]
